FAERS Safety Report 4384389-8 (Version None)
Quarter: 2004Q2

REPORT INFORMATION
  Report Type: 
  Country: None (occurrence: None)
  Receive Date: 20040621
  Receipt Date: 20040607
  Transmission Date: 20050107
  Serious: Yes (Other)
  Sender: FDA-Public Use
  Company Number: 2004218414FI

PATIENT
  Age: 82 Year
  Sex: Female
  Weight: 60 kg

DRUGS (9)
  1. BEXTRA [Suspect]
     Dosage: SEE IMAGE
     Route: 048
     Dates: start: 20030820, end: 20040219
  2. BEXTRA [Suspect]
     Dosage: SEE IMAGE
     Route: 048
     Dates: end: 20040219
  3. LERCANIDIPINE [Concomitant]
  4. SPESICOR [Concomitant]
  5. COZAAR [Concomitant]
  6. MIACALCIN [Concomitant]
  7. KALCIPOS-D [Concomitant]
  8. PANACOD [Concomitant]
  9. CODESAN N (DIPROPHYLLINE, NOSCAPINE HYDROCHLORIDE, COCILLANA TINCTURE) [Concomitant]

REACTIONS (3)
  - BLOOD CREATININE INCREASED [None]
  - BLOOD PARATHYROID HORMONE INCREASED [None]
  - CREATININE RENAL CLEARANCE DECREASED [None]
